FAERS Safety Report 4343078-6 (Version None)
Quarter: 2004Q2

REPORT INFORMATION
  Report Type: 
  Country: None (occurrence: None)
  Receive Date: 20040416
  Receipt Date: 20040408
  Transmission Date: 20050107
  Serious: Yes (Other)
  Sender: FDA-Public Use
  Company Number: US-JNJFOC-20040402009

PATIENT
  Sex: Female

DRUGS (2)
  1. DURAGESIC [Suspect]
     Indication: CANCER PAIN
     Dosage: 75 UG/HR, 1 IN 72 HOUR, TRANSDERMAL
     Route: 062
     Dates: start: 20031201
  2. CHOP (ANTINEOPLASTIC AND IMMUNOSUPPRESSIVE AGENTS) [Suspect]
     Indication: CHEMOTHERAPY

REACTIONS (3)
  - BLINDNESS TRANSIENT [None]
  - HYPOACUSIS [None]
  - NUCLEAR MAGNETIC RESONANCE IMAGING ABNORMAL [None]
